FAERS Safety Report 7922482 (Version 5)
Quarter: 2013Q2

REPORT INFORMATION
  Report Type: Spontaneous
  Country: US (occurrence: US)
  Receive Date: 20110429
  Receipt Date: 20130508
  Transmission Date: 20140414
  Serious: Yes (Other)
  Sender: FDA-Public Use
  Company Number: US-ASTRAZENECA-2011SE00816

PATIENT
  Age: 52 Year
  Sex: Female

DRUGS (3)
  1. NEXIUM [Suspect]
     Indication: GASTRITIS
     Route: 048
  2. NEXIUM [Suspect]
     Indication: GASTRITIS
     Dosage: TWICE A DAY
     Route: 048
  3. NEXIUM [Suspect]
     Indication: GASTRITIS
     Route: 048
     Dates: start: 2013

REACTIONS (6)
  - Haematemesis [Unknown]
  - Stab wound [Unknown]
  - Ligament injury [Unknown]
  - Malaise [Unknown]
  - Intentional drug misuse [Unknown]
  - Off label use [Unknown]
